FAERS Safety Report 4848425-4 (Version None)
Quarter: 2005Q4

REPORT INFORMATION
  Report Type: 
  Country: None (occurrence: None)
  Receive Date: 20051208
  Receipt Date: 20051207
  Transmission Date: 20060501
  Serious: Yes (Other)
  Sender: FDA-Public Use
  Company Number: US-GLAXOSMITHKLINE-A0584924A

PATIENT
  Sex: Female

DRUGS (2)
  1. OS-CAL 500+D TABLETS [Suspect]
     Route: 048
  2. COUMADIN [Concomitant]

REACTIONS (1)
  - CHOKING [None]
